FAERS Safety Report 22366444 (Version 1)
Quarter: 2023Q2

REPORT INFORMATION
  Report Type: Spontaneous
  Country: US (occurrence: US)
  Receive Date: 20230525
  Receipt Date: 20230525
  Transmission Date: 20230721
  Serious: Yes (Other)
  Sender: FDA-Public Use
  Company Number: US-MYOVANT SCIENCES GMBH-2023MYSCI0500511

PATIENT
  Age: 45 Year
  Sex: Female

DRUGS (1)
  1. MYFEMBREE [Suspect]
     Active Substance: ESTRADIOL HEMIHYDRATE\NORETHINDRONE ACETATE\RELUGOLIX
     Indication: Endometriosis
     Dosage: 1 TAB, QD
     Route: 048
     Dates: start: 20230516

REACTIONS (4)
  - Hypoaesthesia [Unknown]
  - Dysarthria [Unknown]
  - Vision blurred [Recovered/Resolved]
  - Headache [Unknown]

NARRATIVE: CASE EVENT DATE: 20230518
